FAERS Safety Report 5245105-0 (Version None)
Quarter: 2007Q1

REPORT INFORMATION
  Report Type: 
  Country: None (occurrence: None)
  Receive Date: 20070223
  Receipt Date: 20070207
  Transmission Date: 20070707
  Serious: Yes (Death, Life-Threatening, Other)
  Sender: FDA-Public Use
  Company Number: JP-PURDUE-MAG_2006_0000501

PATIENT
  Age: 74 Year
  Sex: Female

DRUGS (11)
  1. VEEN D [Concomitant]
     Indication: PANCREATIC CARCINOMA
     Dosage: 1000 ML, DAILY
     Route: 065
     Dates: start: 20050621, end: 20050627
  2. ROPION [Concomitant]
     Indication: CANCER PAIN
     Dosage: 50 MG, DAILY
     Route: 065
     Dates: start: 20050503, end: 20050524
  3. OXYCONTIN [Suspect]
     Indication: CANCER PAIN
     Dosage: 10 MG, DAILY
     Route: 048
     Dates: start: 20050520, end: 20050523
  4. OXYCONTIN [Suspect]
     Dosage: 15 MG, DAILY
     Route: 048
     Dates: start: 20050524, end: 20050525
  5. OXYCONTIN [Suspect]
     Dosage: 30 MG, DAILY
     Route: 048
     Dates: start: 20050713, end: 20050719
  6. OXYCONTIN [Suspect]
     Dosage: 15 MG, DAILY
     Route: 048
     Dates: start: 20050620, end: 20050712
  7. DICLOFENAC SODIUM [Concomitant]
     Indication: PANCREATIC CARCINOMA
     Dosage: 25 MG, DAILY
     Route: 065
     Dates: start: 20050524, end: 20050524
  8. PANTOSIN [Concomitant]
     Indication: PANCREATIC CARCINOMA
     Dosage: 200 MG, DAILY
     Route: 065
     Dates: start: 20050524, end: 20050530
  9. HEP-FLUSH [Concomitant]
     Indication: PANCREATIC CARCINOMA
     Dosage: 10 ML, DAILY
     Route: 065
     Dates: start: 20050524, end: 20050530
  10. PRIMPERAN [Concomitant]
     Indication: PANCREATIC CARCINOMA
     Dosage: 10 MG, DAILY
     Route: 065
     Dates: start: 20050524, end: 20050530
  11. AMINOFLUID [Concomitant]
     Indication: COLON CANCER
     Dosage: 500 ML, DAILY
     Route: 065
     Dates: start: 20050524, end: 20050530

REACTIONS (6)
  - ANAEMIA [None]
  - CONSTIPATION [None]
  - LARGE INTESTINE PERFORATION [None]
  - MALIGNANT NEOPLASM PROGRESSION [None]
  - POSTOPERATIVE WOUND INFECTION [None]
  - SYSTEMIC MYCOSIS [None]
